FAERS Safety Report 23043588 (Version 1)
Quarter: 2023Q4

REPORT INFORMATION
  Report Type: Spontaneous
  Country: US (occurrence: US)
  Receive Date: 20231009
  Receipt Date: 20231009
  Transmission Date: 20240110
  Serious: No
  Sender: FDA-Public Use
  Company Number: US-BRISTOL-MYERS SQUIBB COMPANY-2023-140735

PATIENT
  Age: 76 Year
  Sex: Female
  Weight: 56.25 kg

DRUGS (1)
  1. ONUREG [Suspect]
     Active Substance: AZACITIDINE
     Indication: Product used for unknown indication
     Dosage: 2 WKS ON, 2 WKS OFF
     Route: 048

REACTIONS (1)
  - Adverse event [Unknown]
